FAERS Safety Report 20891097 (Version 2)
Quarter: 2022Q2

REPORT INFORMATION
  Report Type: Spontaneous
  Country: JP (occurrence: JP)
  Receive Date: 20220530
  Receipt Date: 20220531
  Transmission Date: 20220721
  Serious: Yes (Other)
  Sender: FDA-Public Use
  Company Number: JP-ORPHANEU-2022002247

PATIENT
  Age: 18 Year
  Sex: Male

DRUGS (5)
  1. DACTINOMYCIN [Suspect]
     Active Substance: DACTINOMYCIN
     Indication: NUT midline carcinoma
     Dosage: 1.25 MG/M2 ON DAY 1
  2. VINCRISTINE SULFATE [Suspect]
     Active Substance: VINCRISTINE SULFATE
     Indication: NUT midline carcinoma
     Dosage: 1.5 MG/M2 ON DAY1
     Route: 065
  3. CYCLOPHOSPHAMIDE [Suspect]
     Active Substance: CYCLOPHOSPHAMIDE
     Indication: NUT midline carcinoma
     Dosage: 1200 MG/M2
     Route: 065
  4. IFOSFAMIDE [Concomitant]
     Active Substance: IFOSFAMIDE
     Indication: NUT midline carcinoma
     Dosage: 1.8 G/SQM ON DAYS 1-5 , REPETED EVERY 14 DAYS
     Route: 065
  5. ETOPOSIDE [Concomitant]
     Active Substance: ETOPOSIDE
     Indication: NUT midline carcinoma
     Dosage: 100 MG/SQM ON DAYS 1-5, REPEATED EVERY 14 DAYS
     Route: 065

REACTIONS (3)
  - Recurrent cancer [Recovered/Resolved]
  - Febrile neutropenia [Unknown]
  - Off label use [Recovered/Resolved]
